FAERS Safety Report 13813561 (Version 2)
Quarter: 2017Q3

REPORT INFORMATION
  Report Type: Spontaneous
  Country: PL (occurrence: PL)
  Receive Date: 20170731
  Receipt Date: 20170915
  Transmission Date: 20171127
  Serious: Yes (Death, Hospitalization, Other)
  Sender: FDA-Public Use
  Company Number: PL-ROCHE-1965089

PATIENT
  Age: 78 Year
  Sex: Female

DRUGS (4)
  1. CLEMASTINE [Concomitant]
     Active Substance: CLEMASTINE
  2. PARACETAMOL [Concomitant]
     Active Substance: ACETAMINOPHEN
  3. GAZYVARO [Suspect]
     Active Substance: OBINUTUZUMAB
     Indication: PRODUCT USED FOR UNKNOWN INDICATION
     Route: 065
     Dates: start: 20170713, end: 20170714
  4. DEXAMETHASONE, OPHTHALMIC [Concomitant]

REACTIONS (8)
  - Body temperature increased [Unknown]
  - Respiratory failure [Unknown]
  - Tumour lysis syndrome [Unknown]
  - Bronchitis [Unknown]
  - Dyspnoea [Unknown]
  - Pneumonia [Fatal]
  - Pulmonary oedema [Unknown]
  - Chills [Unknown]

NARRATIVE: CASE EVENT DATE: 20170713
